FAERS Safety Report 21066557 (Version 1)
Quarter: 2022Q3

REPORT INFORMATION
  Report Type: Spontaneous
  Country: CN (occurrence: CN)
  Receive Date: 20220711
  Receipt Date: 20220711
  Transmission Date: 20221026
  Serious: Yes (Other)
  Sender: FDA-Public Use
  Company Number: None

PATIENT
  Age: 18 Year
  Sex: Male
  Weight: 58 kg

DRUGS (3)
  1. ZOLPIDEM TARTRATE [Suspect]
     Active Substance: ZOLPIDEM TARTRATE
     Indication: Insomnia
     Dosage: 10 MG, QD
     Route: 048
     Dates: start: 20220627, end: 20220628
  2. OLANZAPINE [Concomitant]
     Active Substance: OLANZAPINE
     Indication: Anxiety disorder
     Dosage: 2.5 MG, QD (ORAL SOLUBLE FILM)
     Route: 048
     Dates: start: 20220623, end: 20220704
  3. VALPROATE MAGNESIUM [Concomitant]
     Active Substance: VALPROATE MAGNESIUM
     Indication: Anxiety disorder
     Dosage: 0.25 G, QD (SUSTAINED RELEASE TABLET)
     Route: 048
     Dates: start: 20220623, end: 20220704

REACTIONS (1)
  - Mental impairment [Recovered/Resolved]

NARRATIVE: CASE EVENT DATE: 20220627
